FAERS Safety Report 18634891 (Version 1)
Quarter: 2020Q4

REPORT INFORMATION
  Report Type: Spontaneous
  Country: US (occurrence: US)
  Receive Date: 20201218
  Receipt Date: 20201218
  Transmission Date: 20210114
  Serious: Yes (Death)
  Sender: FDA-Public Use
  Company Number: US-PFIZER INC-2020494301

PATIENT
  Age: 82 Year
  Sex: Male

DRUGS (4)
  1. AMPICILLIN [Suspect]
     Active Substance: AMPICILLIN
     Indication: ESCHERICHIA INFECTION
     Dosage: UNK
  2. CEFALOTIN [Suspect]
     Active Substance: CEPHALOTHIN
     Indication: ESCHERICHIA INFECTION
     Dosage: UNK
  3. GENTAMICIN SULFATE. [Suspect]
     Active Substance: GENTAMICIN SULFATE
     Indication: ESCHERICHIA INFECTION
     Dosage: UNK
  4. CEFALOTIN [Suspect]
     Active Substance: CEPHALOTHIN
     Dosage: UNK

REACTIONS (1)
  - Drug ineffective [Fatal]
